FAERS Safety Report 10474001 (Version 5)
Quarter: 2014Q4

REPORT INFORMATION
  Report Type: Report from Study
  Country: CA (occurrence: CA)
  Receive Date: 20140924
  Receipt Date: 20141221
  Transmission Date: 20150528
  Serious: Yes (Life-Threatening, Hospitalization, Other)
  Sender: FDA-Public Use
  Company Number: CA-GLAXOSMITHKLINE-A1089779A

PATIENT
  Age: 14 Year
  Sex: Male
  Weight: 55 kg

DRUGS (3)
  1. DABRAFENIB [Suspect]
     Active Substance: DABRAFENIB
     Dosage: 80 MG, QD
     Route: 048
     Dates: start: 20140926
  2. DABRAFENIB [Suspect]
     Active Substance: DABRAFENIB
     Indication: NEOPLASM MALIGNANT
     Dosage: 200 MG, QD
     Route: 048
     Dates: start: 20140828, end: 20140916
  3. GRANISETRON [Suspect]
     Active Substance: GRANISETRON
     Indication: PYREXIA
     Dosage: 1 MG, BID
     Route: 048
     Dates: start: 20140915, end: 20140916

REACTIONS (3)
  - Disseminated intravascular coagulation [Recovered/Resolved]
  - Pyrexia [Recovered/Resolved]
  - Hypotension [Recovered/Resolved]

NARRATIVE: CASE EVENT DATE: 20140916
